FAERS Safety Report 23154376 (Version 1)
Quarter: 2023Q4

REPORT INFORMATION
  Report Type: Spontaneous
  Country: US (occurrence: None)
  Receive Date: 20231107
  Receipt Date: 20231107
  Transmission Date: 20240110
  Serious: Yes (Hospitalization)
  Sender: FDA-Public Use
  Company Number: None

PATIENT
  Age: 72 Year
  Sex: Female
  Weight: 65 kg

DRUGS (2)
  1. GEMCITABINE HYDROCHLORIDE [Suspect]
     Active Substance: GEMCITABINE HYDROCHLORIDE
     Dates: end: 20231101
  2. PACLITAXEL [Suspect]
     Active Substance: PACLITAXEL
     Dates: end: 20231101

REACTIONS (6)
  - Atrial fibrillation [None]
  - Vascular procedure complication [None]
  - Atrial flutter [None]
  - Electrocardiogram ST segment depression [None]
  - Blood magnesium decreased [None]
  - Ventricular tachycardia [None]

NARRATIVE: CASE EVENT DATE: 20231103
